FAERS Safety Report 6147778-7 (Version None)
Quarter: 2009Q2

REPORT INFORMATION
  Report Type: 
  Country: None (occurrence: None)
  Receive Date: 20090408
  Receipt Date: 20090331
  Transmission Date: 20091009
  Serious: Yes (Other)
  Sender: FDA-Public Use
  Company Number: US-AVENTIS-200912050US

PATIENT
  Sex: Female
  Weight: 99.79 kg

DRUGS (7)
  1. LANTUS [Suspect]
     Dosage: DOSE: 60-70
     Route: 058
     Dates: start: 20080101
  2. ALTENOLOL [Concomitant]
  3. LEVOTHYROXINE [Concomitant]
     Dosage: DOSE QUANTITY: 0.05
  4. VYTORIN [Concomitant]
     Dosage: DOSE: 10/20
  5. ASPIRIN [Concomitant]
  6. POTASSIUM CHLORIDE [Concomitant]
     Dosage: DOSE: 1 TAB
  7. LOTREL [Concomitant]
     Dosage: DOSE: 10/20

REACTIONS (4)
  - BLOOD GLUCOSE INCREASED [None]
  - FEELING COLD [None]
  - TREMOR [None]
  - WEIGHT INCREASED [None]
